FAERS Safety Report 9030869 (Version 1)
Quarter: 2013Q1

REPORT INFORMATION
  Report Type: Spontaneous
  Country: US (occurrence: US)
  Receive Date: 20130123
  Receipt Date: 20130123
  Transmission Date: 20140127
  Serious: Yes (Other)
  Sender: FDA-Public Use
  Company Number: US-ROXANE LABORATORIES, INC.-2013-BI-01418GD

PATIENT
  Age: 24 Year
  Sex: Female

DRUGS (9)
  1. MORPHINE [Suspect]
     Indication: ABDOMINAL PAIN
  2. HYDROCODONE/ACETAMINOPHEN [Suspect]
     Indication: ABDOMINAL PAIN
  3. CLONAZEPAM [Concomitant]
  4. LORAZEPAM [Concomitant]
  5. DIPHENOXYLATE/ATROPINE [Concomitant]
  6. SERTRALINE [Concomitant]
  7. FENOFIBRATE [Concomitant]
  8. METOPROLOL [Concomitant]
  9. LEVOTHYROXINE [Concomitant]

REACTIONS (5)
  - Narcotic bowel syndrome [Recovered/Resolved]
  - Nausea [Recovered/Resolved]
  - Diarrhoea [Recovered/Resolved]
  - Asthenia [Unknown]
  - Tachycardia [Unknown]
